FAERS Safety Report 8871767 (Version 5)
Quarter: 2013Q1

REPORT INFORMATION
  Report Type: Spontaneous
  Country: US (occurrence: US)
  Receive Date: 20121030
  Receipt Date: 20130117
  Transmission Date: 20140127
  Serious: Yes (Hospitalization, Other)
  Sender: FDA-Public Use
  Company Number: US-009507513-1203USA01851

PATIENT
  Sex: 0

DRUGS (3)
  1. FOSAMAX [Suspect]
     Indication: OSTEOPENIA
     Dosage: 70 MG, UNK
     Route: 048
     Dates: start: 200303, end: 201101
  2. ALENDRONATE SODIUM [Suspect]
     Dosage: 70 MG, UNK
     Route: 048
  3. LEVOTHYROXINE SODIUM [Concomitant]
     Indication: HYPOTHYROIDISM

REACTIONS (12)
  - Femur fracture [Unknown]
  - Intramedullary rod insertion [Unknown]
  - Haematocrit decreased [Recovered/Resolved]
  - Somnolence [Unknown]
  - Fracture delayed union [Recovering/Resolving]
  - Blood cholesterol increased [Unknown]
  - Osteoporosis [Unknown]
  - Anxiety [Unknown]
  - Bursitis [Unknown]
  - Drug hypersensitivity [Unknown]
  - Gastrooesophageal reflux disease [Unknown]
  - Pain [Unknown]
